FAERS Safety Report 4431039-8 (Version None)
Quarter: 2004Q3

REPORT INFORMATION
  Report Type: 
  Country: None (occurrence: None)
  Receive Date: 20040824
  Receipt Date: 20040722
  Transmission Date: 20050211
  Serious: No
  Sender: FDA-Public Use
  Company Number: US-BRISTOL-MYERS SQUIBB COMPANY-12648812

PATIENT
  Age: 57 Year
  Sex: Female
  Weight: 51 kg

DRUGS (5)
  1. MEGACE [Suspect]
     Indication: ENDOMETRIAL DISORDER
     Route: 048
     Dates: start: 20030401, end: 20031101
  2. ALPRAZOLAM [Concomitant]
  3. AMBIEN [Concomitant]
  4. TOPROL-XL [Concomitant]
  5. ZETIA [Concomitant]

REACTIONS (2)
  - ALOPECIA [None]
  - WEIGHT INCREASED [None]
